FAERS Safety Report 5433840-0 (Version None)
Quarter: 2007Q3

REPORT INFORMATION
  Report Type: 
  Country: None (occurrence: None)
  Receive Date: 20070828
  Receipt Date: 20070828
  Transmission Date: 20080115
  Serious: Yes (Hospitalization)
  Sender: FDA-Public Use
  Company Number: None

PATIENT
  Sex: Male
  Weight: 168 kg

DRUGS (14)
  1. IMATINIB MESYLATE [Suspect]
     Indication: RENAL CELL CARCINOMA STAGE UNSPECIFIED
     Dosage: 600MG PER DAY ORAL
     Route: 048
     Dates: start: 20070815, end: 20070816
  2. RAD001, 2.5MG, NOVARTIS [Suspect]
     Indication: RENAL CELL CARCINOMA STAGE UNSPECIFIED
     Dosage: 2.5MG PER DAY ORAL
     Route: 048
     Dates: start: 20070815, end: 20070816
  3. ALTACE [Concomitant]
  4. BENICAR HCT [Concomitant]
  5. TOPROL-XL [Concomitant]
  6. NEXIUM [Concomitant]
  7. VYTORIN [Concomitant]
  8. LANTUS [Concomitant]
  9. LISPRO INSULIN [Concomitant]
  10. FISH OIL [Concomitant]
  11. FIBER PILLS [Concomitant]
  12. MULTI-VITAMIN [Concomitant]
  13. PERCOCET [Concomitant]
  14. BENZOATATE [Concomitant]

REACTIONS (3)
  - HYPOTENSION [None]
  - RENAL FAILURE [None]
  - SEPSIS [None]
